FAERS Safety Report 8798325 (Version 3)
Quarter: 2012Q4

REPORT INFORMATION
  Report Type: Report from Study
  Country: AU (occurrence: AU)
  Receive Date: 20120920
  Receipt Date: 20121120
  Transmission Date: 20130627
  Serious: Yes (Disabling)
  Sender: FDA-Public Use
  Company Number: AU-ROCHE-1130810

PATIENT
  Age: 77 Year
  Sex: Female

DRUGS (23)
  1. METHOXY POLYETHYLENE GLYCOL-EPOETIN BETA [Suspect]
     Indication: NEPHROGENIC ANAEMIA
     Route: 058
     Dates: start: 20120605
  2. METHOXY POLYETHYLENE GLYCOL-EPOETIN BETA [Suspect]
     Route: 058
     Dates: start: 20120615
  3. METHOXY POLYETHYLENE GLYCOL-EPOETIN BETA [Suspect]
     Route: 058
     Dates: start: 20120726
  4. EZETIMIBE [Concomitant]
  5. LATANOPROST [Concomitant]
  6. FRUSEMIDE [Concomitant]
  7. ALLOPURINOL [Concomitant]
  8. PRAZOSIN [Concomitant]
  9. LATANOPROST [Concomitant]
  10. INSULIN ASPART [Concomitant]
  11. GLIPIZIDE [Concomitant]
  12. CHOLECALCIFEROL [Concomitant]
  13. ESOMEPRAZOLE [Concomitant]
  14. NEXIUM [Concomitant]
  15. MINIPRESS [Concomitant]
  16. ATORVASTATIN [Concomitant]
  17. PHENYTOIN [Concomitant]
  18. PRAZOSIN [Concomitant]
  19. NEXIUM [Concomitant]
     Route: 065
  20. NOVOMIX [Concomitant]
  21. NOVORAPID [Concomitant]
  22. PARACETAMOL [Concomitant]
  23. XALATAN [Concomitant]

REACTIONS (4)
  - Myelodysplastic syndrome [Unknown]
  - Renal failure chronic [Unknown]
  - Hypoglycaemia [Unknown]
  - Subarachnoid haemorrhage [Unknown]
